FAERS Safety Report 26194429 (Version 1)
Quarter: 2025Q4

REPORT INFORMATION
  Report Type: Spontaneous
  Country: CH (occurrence: CH)
  Receive Date: 20251224
  Receipt Date: 20251224
  Transmission Date: 20260117
  Serious: Yes (Hospitalization, Other)
  Sender: MYLAN
  Company Number: None

PATIENT
  Age: 83 Year
  Sex: Male
  Weight: 77 kg

DRUGS (10)
  1. PREGABALIN [Suspect]
     Active Substance: PREGABALIN
     Indication: Neuralgia
     Dosage: 100 MILLIGRAM, QD (INDICATION UNCLEAR BUT POSSIBLY FOR NEUROPATHIC PAIN IN L4-S2)
     Route: 061
     Dates: start: 20250703
  2. CANDESARTAN [Suspect]
     Active Substance: CANDESARTAN
     Indication: Hypertension
     Dosage: 16 MILLIGRAM, QD
     Route: 061
     Dates: start: 2023
  3. CANDESARTAN [Suspect]
     Active Substance: CANDESARTAN
     Dosage: UNK
     Route: 061
  4. TRAMADOL [Suspect]
     Active Substance: TRAMADOL
     Indication: Back pain
     Dosage: 50 MILLIGRAM, PRN (2 INTO 50 MG/DAY, IF NEEDED)
     Route: 061
  5. TOVIAZ [Suspect]
     Active Substance: FESOTERODINE FUMARATE
     Indication: Neurogenic bladder
     Dosage: 8 MILLIGRAM, QD (BLADDER NECK DYSFUNCTION FOLLOWING AN ACCIDENT IN THE 1980S (ANAL AND BLADDER PERFORATION))
     Route: 061
     Dates: start: 20211117, end: 20251205
  6. MIRABEGRON [Suspect]
     Active Substance: MIRABEGRON
     Indication: Neurogenic bladder
     Dosage: 50 MILLIGRAM, QD
     Route: 061
     Dates: start: 20211117
  7. MOVICOL [Concomitant]
     Active Substance: POLYETHYLENE GLYCOL 3350\POTASSIUM CHLORIDE\SODIUM BICARBONATE\SODIUM CHLORIDE
     Dosage: 1 DOSAGE FORM, QD (1 SACHET/DAY)
  8. DUPHALAC [Concomitant]
     Active Substance: LACTULOSE
     Dosage: 25 MILLILITER, QD
  9. MIRABEGRON [Concomitant]
     Active Substance: MIRABEGRON
     Dosage: 50 MILLIGRAM, QD
  10. FESOTERODINE [Concomitant]
     Active Substance: FESOTERODINE
     Dosage: 8 MILLIGRAM, QD

REACTIONS (2)
  - Faecaloma [Recovered/Resolved]
  - Fall [Recovered/Resolved]

NARRATIVE: CASE EVENT DATE: 20251202
